FAERS Safety Report 18178526 (Version 1)
Quarter: 2020Q3

REPORT INFORMATION
  Report Type: Spontaneous
  Country: US (occurrence: US)
  Receive Date: 20200821
  Receipt Date: 20200821
  Transmission Date: 20201103
  Serious: No
  Sender: FDA-Public Use
  Company Number: US-OREXO US, INC.-ORE201908-000086

PATIENT
  Sex: Female

DRUGS (7)
  1. ZOMIG [Concomitant]
     Active Substance: ZOLMITRIPTAN
  2. LYRICA [Suspect]
     Active Substance: PREGABALIN
     Dosage: ONCE A DAY
     Dates: end: 201906
  3. LYRICA [Suspect]
     Active Substance: PREGABALIN
     Dosage: 20 MG LIQUID
  4. ZUBSOLV [Suspect]
     Active Substance: BUPRENORPHINE HYDROCHLORIDE\NALOXONE HYDROCHLORIDE
     Indication: DRUG DEPENDENCE
     Dosage: TWICE A DAY FROM PAST TWO AND HALF YEARS
     Dates: start: 201703
  5. LYRICA [Suspect]
     Active Substance: PREGABALIN
     Dosage: 75 MG; TWICE A DAY
  6. PHENOBARBITAL. [Suspect]
     Active Substance: PHENOBARBITAL
  7. IBUPREFEN [Concomitant]

REACTIONS (1)
  - Drug withdrawal syndrome [Not Recovered/Not Resolved]
